FAERS Safety Report 7530608-6 (Version None)
Quarter: 2011Q2

REPORT INFORMATION
  Report Type: 
  Country: None (occurrence: None)
  Receive Date: 20110607
  Receipt Date: 20110524
  Transmission Date: 20111010
  Serious: Yes (Hospitalization)
  Sender: FDA-Public Use
  Company Number: US-BAYER-200943723NA

PATIENT
  Age: 45 Year
  Sex: Female
  Weight: 79.365 kg

DRUGS (21)
  1. ADVAIR DISKUS 100/50 [Concomitant]
  2. ETODOLAC [Concomitant]
  3. NEXIUM [Concomitant]
  4. LOTENSIN [Concomitant]
     Indication: HYPERTENSION
  5. KLOR-CON [Concomitant]
     Indication: BLOOD POTASSIUM DECREASED
  6. RESTORIL [Concomitant]
  7. CALAN SLOW RELEASE [Concomitant]
  8. WELLBUTRIN [Concomitant]
  9. FLONASE [Concomitant]
  10. CLARINEX [Concomitant]
  11. YASMIN [Suspect]
     Indication: UTERINE LEIOMYOMA
     Dosage: UNK
     Dates: start: 20030101, end: 20060101
  12. SINGULAIR [Concomitant]
  13. ASPIRIN [Concomitant]
  14. HYDROCHLOROTHIAZIDE [Concomitant]
  15. ALLERGY SHOTS [Concomitant]
  16. VERAPAMIL [Concomitant]
  17. TOPROL-XL [Concomitant]
  18. FIORICET [Concomitant]
  19. VITAMIN B12 [Concomitant]
  20. ALBUTEROL SULFATE AUTOHALER [Concomitant]
  21. POTASSIUM 99 [Concomitant]

REACTIONS (2)
  - CEREBROVASCULAR ACCIDENT [None]
  - PAIN [None]
